FAERS Safety Report 6191055-5 (Version None)
Quarter: 2009Q2

REPORT INFORMATION
  Report Type: 
  Country: None (occurrence: None)
  Receive Date: 20090513
  Receipt Date: 20090428
  Transmission Date: 20091009
  Serious: Yes (Death, Other)
  Sender: FDA-Public Use
  Company Number: AE# 09-174DPR

PATIENT
  Age: 94 Year
  Sex: Male

DRUGS (11)
  1. DIGOXIN [Suspect]
     Indication: CARDIAC DISORDER
     Dosage: YEARS AGO- UNTIL DEATH
  2. FOLIC ACID [Concomitant]
  3. VITAMIN E [Concomitant]
  4. CAPTOPRIL [Concomitant]
  5. ASPIRIN [Concomitant]
  6. DULCOSATE 100MG [Concomitant]
  7. FERROUS 325MG [Concomitant]
  8. ASCORBIC ACID 500 MG [Concomitant]
  9. MULTIVITAMIN [Concomitant]
  10. THEREMS [Concomitant]
  11. FUROSEMIDE 20MG [Concomitant]

REACTIONS (7)
  - ACTIVITIES OF DAILY LIVING IMPAIRED [None]
  - CARDIAC FAILURE CONGESTIVE [None]
  - FALL [None]
  - GENERAL PHYSICAL HEALTH DETERIORATION [None]
  - MEMORY IMPAIRMENT [None]
  - PELVIC FRACTURE [None]
  - PULMONARY OEDEMA [None]
